FAERS Safety Report 13584307 (Version 1)
Quarter: 2017Q2

REPORT INFORMATION
  Report Type: Spontaneous
  Country: US (occurrence: US)
  Receive Date: 20170525
  Receipt Date: 20170525
  Transmission Date: 20170830
  Serious: Yes (Life-Threatening, Disabling, Other)
  Sender: FDA-Public Use
  Company Number: None

PATIENT
  Age: 33 Year
  Sex: Female
  Weight: 115.6 kg

DRUGS (4)
  1. TRAZODONE [Concomitant]
     Active Substance: TRAZODONE HYDROCHLORIDE
  2. BENTROPINE [Concomitant]
  3. ARIPIPRAZOLE. [Suspect]
     Active Substance: ARIPIPRAZOLE
     Indication: BIPOLAR DISORDER
     Dosage: ?          QUANTITY:60 TABLET(S);?
     Route: 048
  4. SUBOX/NALAXONE [Concomitant]

REACTIONS (9)
  - Weight increased [None]
  - Gambling [None]
  - Glucose tolerance impaired [None]
  - Migraine [None]
  - Compulsions [None]
  - Drug ineffective [None]
  - Dyskinesia [None]
  - Seizure [None]
  - Hypertension [None]

NARRATIVE: CASE EVENT DATE: 20170111
